FAERS Safety Report 8720556 (Version 2)
Quarter: 2012Q4

REPORT INFORMATION
  Report Type: 
  Country: US (occurrence: US)
  Receive Date: 20120813
  Receipt Date: 20121009
  Transmission Date: 20130627
  Serious: Yes (Other)
  Sender: FDA-Public Use
  Company Number: US-BAYER-2012-081745

PATIENT
  Age: 17 Year
  Sex: Female

DRUGS (2)
  1. MIRENA [Suspect]
     Indication: MENORRHAGIA
     Dosage: 20 mcg/24hr, CONT
     Route: 015
     Dates: start: 20120807, end: 20120807
  2. MIRENA [Suspect]
     Indication: MENORRHAGIA
     Dosage: 20 mcg/24hr, CONT
     Route: 015
     Dates: start: 20120807

REACTIONS (7)
  - Streptococcal infection [None]
  - Device expulsion [None]
  - Procedural pain [None]
  - Vaginitis bacterial [None]
  - Herpes virus infection [Recovered/Resolved]
  - Vaginal disorder [None]
  - Blood urine present [None]
